FAERS Safety Report 4430092-5 (Version None)
Quarter: 2004Q3

REPORT INFORMATION
  Report Type: 
  Country: None (occurrence: None)
  Receive Date: 20040817
  Receipt Date: 20040803
  Transmission Date: 20050211
  Serious: Yes (Hospitalization)
  Sender: FDA-Public Use
  Company Number: S04-USA-04867-01

PATIENT
  Age: 61 Year
  Sex: Female

DRUGS (15)
  1. LEXAPRO [Suspect]
     Indication: DEPRESSION
     Dosage: 15 MG QD PO
     Route: 048
     Dates: start: 20030901, end: 20031215
  2. LEXAPRO [Suspect]
     Indication: DEPRESSION
     Dosage: 5 MG QD PO
     Route: 048
     Dates: start: 20030601, end: 20030701
  3. LEXAPRO [Suspect]
     Indication: DEPRESSION
     Dosage: 10 MG QD PO
     Route: 048
     Dates: start: 20030701, end: 20030901
  4. LEXAPRO [Suspect]
     Indication: DEPRESSION
     Dosage: 5 MG QHS PO
     Route: 048
     Dates: start: 20031215, end: 20040201
  5. LEXAPRO [Suspect]
     Indication: DEPRESSION
     Dosage: 10 MG QAM PO
     Route: 048
     Dates: start: 20031215, end: 20040201
  6. LEXAPRO [Suspect]
     Indication: DEPRESSION
     Dosage: 10 MG QD PO
     Route: 048
     Dates: start: 20040201, end: 20040501
  7. LEXAPRO [Suspect]
     Indication: DEPRESSION
     Dosage: 5 MG QD PO
     Route: 048
     Dates: start: 20040101, end: 20040101
  8. LEXAPRO [Suspect]
     Indication: DEPRESSION
     Dosage: 10 MG QD PO
     Route: 048
     Dates: start: 20040101, end: 20040101
  9. LEXAPRO [Suspect]
     Indication: DEPRESSION
     Dosage: 15 MG QD PO
     Route: 048
     Dates: start: 20040601, end: 20040601
  10. LEXAPRO [Suspect]
     Indication: DEPRESSION
     Dosage: 10 MG QD PO
     Route: 048
     Dates: start: 20040101
  11. PROZAC [Suspect]
     Dosage: 20 MG QD PO
     Route: 048
     Dates: start: 20040201, end: 20040201
  12. KLONOPIN [Concomitant]
  13. DIGOXIN [Concomitant]
  14. TIAZAC [Concomitant]
  15. METHOTREXATE [Concomitant]

REACTIONS (11)
  - CYSTITIS INTERSTITIAL [None]
  - DRUG HYPERSENSITIVITY [None]
  - DRY MOUTH [None]
  - GASTRIC DISORDER [None]
  - HYPERHIDROSIS [None]
  - MEDICATION ERROR [None]
  - MUSCLE SPASMS [None]
  - PNEUMONIA BACTERIAL [None]
  - RESIDUAL URINE VOLUME [None]
  - URETHRAL DISORDER [None]
  - URINARY RETENTION [None]
